FAERS Safety Report 20025477 (Version 1)
Quarter: 2021Q4

REPORT INFORMATION
  Report Type: Report from Study
  Country: US (occurrence: US)
  Receive Date: 20211102
  Receipt Date: 20211102
  Transmission Date: 20220303
  Serious: Yes (Death)
  Sender: FDA-Public Use
  Company Number: US-MYLANLABS-2021M1080156

PATIENT
  Age: 33 Year
  Sex: Female

DRUGS (6)
  1. VERAPAMIL [Suspect]
     Active Substance: VERAPAMIL HYDROCHLORIDE
     Indication: Product used for unknown indication
     Dosage: UNK
     Route: 065
  2. EPINEPHRINE [Suspect]
     Active Substance: EPINEPHRINE
     Indication: Toxicity to various agents
     Dosage: UNK
     Route: 065
  3. NOREPINEPHRINE [Suspect]
     Active Substance: NOREPINEPHRINE
     Indication: Toxicity to various agents
     Dosage: UNK
     Route: 065
  4. INSULIN GLARGINE [Suspect]
     Active Substance: INSULIN GLARGINE
     Indication: Toxicity to various agents
     Dosage: HIGH-DOSE INSULIN EUGLYCAEMIC THERAPY
     Route: 065
  5. VASOPRESSIN [Suspect]
     Active Substance: VASOPRESSIN
     Indication: Toxicity to various agents
     Dosage: UNK
     Route: 065
  6. ACTIVATED CHARCOAL [Suspect]
     Active Substance: ACTIVATED CHARCOAL
     Indication: Toxicity to various agents
     Dosage: UNK
     Route: 065

REACTIONS (12)
  - Toxicity to various agents [Fatal]
  - Coma [Fatal]
  - Bradycardia [Fatal]
  - Hypotension [Fatal]
  - Acute kidney injury [Fatal]
  - Atrioventricular block [Fatal]
  - Coagulopathy [Fatal]
  - Asthma [Fatal]
  - Bronchial hyperreactivity [Fatal]
  - Metabolic acidosis [Fatal]
  - Anion gap [Fatal]
  - Drug ineffective [Fatal]
